FAERS Safety Report 7207765-4 (Version None)
Quarter: 2011Q1

REPORT INFORMATION
  Report Type: 
  Country: None (occurrence: None)
  Receive Date: 20110103
  Receipt Date: 20101220
  Transmission Date: 20110831
  Serious: Yes (Hospitalization)
  Sender: FDA-Public Use
  Company Number: ES-MYLANLABS-2010S1023527

PATIENT
  Age: 67 Year
  Sex: Male

DRUGS (4)
  1. FLUTICASONE PROPIONATE [Concomitant]
     Route: 055
  2. LOSARTAN [Concomitant]
     Route: 065
  3. OMEPRAZOLE [Suspect]
     Route: 065
     Dates: start: 20060101
  4. ASPIRIN [Concomitant]
     Route: 065

REACTIONS (2)
  - HYPOCALCAEMIA [None]
  - HYPOMAGNESAEMIA [None]
